FAERS Safety Report 25798120 (Version 1)
Quarter: 2025Q3

REPORT INFORMATION
  Report Type: Spontaneous
  Country: IN (occurrence: IN)
  Receive Date: 20250912
  Receipt Date: 20250912
  Transmission Date: 20251020
  Serious: Yes (Life-Threatening)
  Sender: NOVARTIS
  Company Number: IN-002147023-NVSC2025IN142467

PATIENT
  Age: 63 Year
  Sex: Female

DRUGS (1)
  1. SACUBITRIL\VALSARTAN [Suspect]
     Active Substance: SACUBITRIL\VALSARTAN
     Indication: Cardiac failure
     Route: 048
     Dates: start: 202411, end: 202507

REACTIONS (8)
  - Cerebral haemorrhage [Not Recovered/Not Resolved]
  - Gait inability [Not Recovered/Not Resolved]
  - Visual impairment [Not Recovered/Not Resolved]
  - Cough [Not Recovered/Not Resolved]
  - Weight decreased [Unknown]
  - Dyspnoea [Unknown]
  - Feeding disorder [Unknown]
  - Cerebrovascular accident [Not Recovered/Not Resolved]

NARRATIVE: CASE EVENT DATE: 20241101
